FAERS Safety Report 5158750-8 (Version None)
Quarter: 2006Q4

REPORT INFORMATION
  Report Type: 
  Country: None (occurrence: None)
  Receive Date: 20061128
  Receipt Date: 20061113
  Transmission Date: 20070319
  Serious: Yes (Other)
  Sender: FDA-Public Use
  Company Number: US-ROCHE-471211

PATIENT
  Age: 63 Year
  Sex: Female
  Weight: 63.5 kg

DRUGS (2)
  1. BONIVA [Suspect]
     Indication: OSTEOPENIA
     Route: 048
     Dates: start: 20060615
  2. ASTHMA MEDICATIONS NOS [Concomitant]
     Indication: ASTHMA
     Route: 065

REACTIONS (2)
  - FALL [None]
  - RIB FRACTURE [None]
